FAERS Safety Report 16265882 (Version 3)
Quarter: 2019Q2

REPORT INFORMATION
  Report Type: Spontaneous
  Country: IE (occurrence: IE)
  Receive Date: 20190502
  Receipt Date: 20190502
  Transmission Date: 20190711
  Serious: Yes (Other)
  Sender: FDA-Public Use
  Company Number: PHHY2019IE098569

PATIENT
  Age: 27 Year
  Sex: Female

DRUGS (3)
  1. VITAMIN C [Suspect]
     Active Substance: ASCORBIC ACID
     Indication: METHAEMOGLOBINAEMIA
     Route: 065
  2. BENZOCAINE. [Suspect]
     Active Substance: BENZOCAINE
     Indication: PRODUCT USED FOR UNKNOWN INDICATION
     Route: 048
  3. PREDNISOLONE. [Suspect]
     Active Substance: PREDNISOLONE
     Indication: VASCULITIS
     Route: 065

REACTIONS (6)
  - Premature delivery [Unknown]
  - Maternal exposure during pregnancy [Unknown]
  - Vasculitis [Recovering/Resolving]
  - Condition aggravated [Recovering/Resolving]
  - Methaemoglobinaemia [Recovering/Resolving]
  - Hypoxia [Recovering/Resolving]
